FAERS Safety Report 4682118-1 (Version None)
Quarter: 2005Q2

REPORT INFORMATION
  Report Type: 
  Country: None (occurrence: None)
  Receive Date: 20050603
  Receipt Date: 20050603
  Transmission Date: 20051028
  Serious: Yes (Hospitalization)
  Sender: FDA-Public Use
  Company Number: None

PATIENT
  Age: 55 Year
  Sex: Female
  Weight: 79.8331 kg

DRUGS (2)
  1. CISPLATIN [Suspect]
     Indication: LIP AND/OR ORAL CAVITY CANCER
     Dosage: 56 MG   WK 1,2,4,5   INTRAVENOU
     Route: 042
     Dates: start: 20050331, end: 20050519
  2. CPT-11 [Suspect]
     Indication: LIP AND/OR ORAL CAVITY CANCER
     Dosage: 94 MG    WK 1,2,4,5    INTRAVENOU
     Route: 042
     Dates: start: 20050331, end: 20050519

REACTIONS (3)
  - APHAGIA [None]
  - CEREBROVASCULAR ACCIDENT [None]
  - DEEP VEIN THROMBOSIS [None]
